FAERS Safety Report 24551981 (Version 2)
Quarter: 2024Q4

REPORT INFORMATION
  Report Type: Spontaneous
  Country: US (occurrence: US)
  Receive Date: 20241026
  Receipt Date: 20241030
  Transmission Date: 20250114
  Serious: Yes (Death, Other)
  Sender: ROCHE
  Company Number: US-ROCHE-10000115209

PATIENT
  Sex: Male

DRUGS (1)
  1. ERIVEDGE [Suspect]
     Active Substance: VISMODEGIB
     Indication: Basal cell carcinoma
     Route: 065

REACTIONS (2)
  - Cerebrovascular accident [Unknown]
  - Death [Fatal]
